FAERS Safety Report 10275762 (Version 4)
Quarter: 2014Q4

REPORT INFORMATION
  Report Type: Spontaneous
  Country: US (occurrence: None)
  Receive Date: 20140701
  Receipt Date: 20141117
  Transmission Date: 20150528
  Serious: Yes (Hospitalization, Other)
  Sender: FDA-Public Use
  Company Number: 2014-US-001883

PATIENT
  Age: 66 Year
  Sex: Female

DRUGS (1)
  1. XYREM [Suspect]
     Active Substance: SODIUM OXYBATE
     Indication: NARCOLEPSY
     Route: 048
     Dates: start: 201108, end: 2011

REACTIONS (4)
  - Knee arthroplasty [None]
  - Blood pressure increased [None]
  - Osteoarthritis [None]
  - Meniscus injury [None]

NARRATIVE: CASE EVENT DATE: 2014
